FAERS Safety Report 6521507-7 (Version None)
Quarter: 2009Q4

REPORT INFORMATION
  Report Type: 
  Country: None (occurrence: None)
  Receive Date: 20091230
  Receipt Date: 20091224
  Transmission Date: 20100525
  Serious: Yes (Death)
  Sender: FDA-Public Use
  Company Number: JP-BRISTOL-MYERS SQUIBB COMPANY-14885594

PATIENT
  Age: 62 Year
  Sex: Male

DRUGS (6)
  1. TAXOL [Suspect]
     Indication: GASTRIC CANCER
     Dosage: 23NOV09-23NOV09 30NOV09-30NOV09
     Dates: start: 20091123
  2. LAPATINIB [Suspect]
     Indication: GASTRIC CANCER
     Dosage: INTERRUPTED ON 07DEC09
     Route: 048
     Dates: start: 20091123
  3. SUCRALFATE [Concomitant]
     Indication: PROPHYLAXIS
     Route: 048
     Dates: start: 20091001
  4. LORAZEPAM [Concomitant]
     Indication: INSOMNIA
     Route: 048
     Dates: start: 20091114
  5. METFORMIN HCL [Concomitant]
     Indication: DIABETES MELLITUS
     Route: 048
     Dates: start: 20090807
  6. CODEINE PHOSPHATE [Concomitant]
     Indication: ABDOMINAL PAIN
     Route: 048
     Dates: start: 20091207

REACTIONS (2)
  - ASTHENIA [None]
  - DIARRHOEA [None]
